FAERS Safety Report 6012557-8 (Version None)
Quarter: 2008Q4

REPORT INFORMATION
  Report Type: 
  Country: None (occurrence: None)
  Receive Date: 20081218
  Receipt Date: 20081013
  Transmission Date: 20090506
  Serious: No
  Sender: FDA-Public Use
  Company Number: US-B.I. PHARMACEUTICALS,INC./RIDGEFIELD-2008-BP-15772BP

PATIENT
  Sex: Male

DRUGS (3)
  1. FLOMAX [Suspect]
     Indication: BENIGN PROSTATIC HYPERPLASIA
     Dosage: .4MG
     Route: 048
     Dates: start: 20080701
  2. AVODART [Suspect]
     Indication: BENIGN PROSTATIC HYPERPLASIA
  3. PREVACID [Concomitant]
     Indication: DYSPEPSIA

REACTIONS (2)
  - NOCTURIA [None]
  - POLLAKIURIA [None]
